FAERS Safety Report 17779929 (Version 1)
Quarter: 2020Q2

REPORT INFORMATION
  Report Type: Report from Study
  Country: GB (occurrence: GB)
  Receive Date: 20200513
  Receipt Date: 20200513
  Transmission Date: 20200714
  Serious: Yes (Other)
  Sender: FDA-Public Use
  Company Number: GB-SUN PHARMACEUTICAL INDUSTRIES LTD-2020R1-246690

PATIENT
  Sex: Male

DRUGS (1)
  1. VALPROIC ACID. [Suspect]
     Active Substance: VALPROIC ACID
     Indication: SEIZURE
     Dosage: UNK
     Route: 065

REACTIONS (7)
  - Dysarthria [Unknown]
  - Aggression [Unknown]
  - Pectus excavatum [Unknown]
  - Developmental delay [Unknown]
  - Hypokinesia [Unknown]
  - Foetal exposure during pregnancy [Not Recovered/Not Resolved]
  - Dysmorphism [Not Recovered/Not Resolved]
